FAERS Safety Report 6093137-5 (Version None)
Quarter: 2009Q1

REPORT INFORMATION
  Report Type: 
  Country: None (occurrence: None)
  Receive Date: 20090226
  Receipt Date: 20090216
  Transmission Date: 20090719
  Serious: Yes (Death, Hospitalization)
  Sender: FDA-Public Use
  Company Number: PH-PFIZER INC-2009171820

PATIENT

DRUGS (4)
  1. NORVASC [Suspect]
     Indication: HYPERTENSION
  2. CENTRUM [Concomitant]
  3. NEXIUM [Concomitant]
  4. PLASIL [Concomitant]

REACTIONS (2)
  - CARDIAC ARREST [None]
  - DYSURIA [None]
